FAERS Safety Report 9715705 (Version 1)
Quarter: 2013Q4

REPORT INFORMATION
  Report Type: Spontaneous
  Country: ES (occurrence: ES)
  Receive Date: 20131127
  Receipt Date: 20131127
  Transmission Date: 20140711
  Serious: Yes (Other)
  Sender: FDA-Public Use
  Company Number: ES-ASTRAZENECA-2013SE85100

PATIENT
  Age: 70 Year
  Sex: Female

DRUGS (1)
  1. VIMOVO [Suspect]
     Indication: PAIN
     Dosage: 500 MG NAPROXEN + 20 MG ESOMEPRAZOLE MAGNESIUM
     Route: 048
     Dates: start: 20130119, end: 20130120

REACTIONS (3)
  - Sinus tachycardia [Recovered/Resolved]
  - Rash [Recovered/Resolved]
  - Hypertension [Recovered/Resolved]
